FAERS Safety Report 7557427-9 (Version None)
Quarter: 2011Q2

REPORT INFORMATION
  Report Type: 
  Country: None (occurrence: None)
  Receive Date: 20110620
  Receipt Date: 20110607
  Transmission Date: 20111010
  Serious: Yes (Death, Hospitalization)
  Sender: FDA-Public Use
  Company Number: US-ROCHE-782733

PATIENT
  Age: 69 Year
  Sex: Female

DRUGS (2)
  1. BEVACIZUMAB [Suspect]
     Indication: BREAST CANCER
     Dosage: FREQUENCY: OVER 30-90 MIN ON DAYS 1 AND 15
     Route: 042
     Dates: start: 20100901
  2. IXABEPILONE [Suspect]
     Indication: BREAST CANCER
     Dosage: FREQUENCY: OVER 1 HR ON DAYS 1, 8 AND 15
     Route: 042
     Dates: start: 20100901

REACTIONS (2)
  - SEPSIS [None]
  - BLOOD ANTIDIURETIC HORMONE ABNORMAL [None]
